FAERS Safety Report 16721884 (Version 2)
Quarter: 2019Q3

REPORT INFORMATION
  Report Type: Report from Study
  Country: BR (occurrence: BR)
  Receive Date: 20190820
  Receipt Date: 20190916
  Transmission Date: 20191005
  Serious: Yes (Disabling, Other)
  Sender: FDA-Public Use
  Company Number: PHHY2019BR190512

PATIENT
  Sex: Female
  Weight: 60 kg

DRUGS (5)
  1. VALSARTAN + HCT [Suspect]
     Active Substance: HYDROCHLOROTHIAZIDE\VALSARTAN
     Indication: PRODUCT USED FOR UNKNOWN INDICATION
     Route: 065
  2. BEZAFIBRATE [Concomitant]
     Active Substance: BEZAFIBRATE
     Indication: BLOOD TRIGLYCERIDES ABNORMAL
     Dosage: 24 MG, UNK
     Route: 048
  3. BETAHISTINE DIHYDROCHLORIDE [Concomitant]
     Active Substance: BETAHISTINE
     Indication: PRODUCT USED FOR UNKNOWN INDICATION
     Dosage: 24 MG, QD
     Route: 048
  4. SERTRALINE [Concomitant]
     Active Substance: SERTRALINE HYDROCHLORIDE
     Indication: DEPRESSION
     Dosage: 50 MG, QD
     Route: 048
  5. DIOVAN [Suspect]
     Active Substance: VALSARTAN
     Indication: HYPERTENSION
     Dosage: 80 MG, QD
     Route: 048

REACTIONS (16)
  - Femur fracture [Not Recovered/Not Resolved]
  - Labyrinthitis [Unknown]
  - Mobility decreased [Not Recovered/Not Resolved]
  - Musculoskeletal pain [Not Recovered/Not Resolved]
  - Pain in extremity [Not Recovered/Not Resolved]
  - Blood triglycerides increased [Unknown]
  - Back pain [Recovered/Resolved]
  - Feeling abnormal [Recovering/Resolving]
  - Blood pressure increased [Recovered/Resolved]
  - Pain [Recovering/Resolving]
  - Gait disturbance [Not Recovered/Not Resolved]
  - Bone disorder [Recovering/Resolving]
  - Chondropathy [Not Recovered/Not Resolved]
  - Dyskinesia [Unknown]
  - Thyroxine decreased [Unknown]
  - Balance disorder [Unknown]
